FAERS Safety Report 6148560-7 (Version None)
Quarter: 2009Q2

REPORT INFORMATION
  Report Type: 
  Country: None (occurrence: None)
  Receive Date: 20090406
  Receipt Date: 20090406
  Transmission Date: 20091009
  Serious: Yes (Life-Threatening, Other)
  Sender: FDA-Public Use
  Company Number: None

PATIENT
  Age: 45 Year
  Sex: Female
  Weight: 50.8029 kg

DRUGS (3)
  1. PLIVA PRESCRIPTION STRENGTH VITAMIN D BARR PHARMACEUTICALS NEW JERSEY [Suspect]
  2. POTASSIUM CHLORIDE [Concomitant]
  3. ATIVAN [Concomitant]

REACTIONS (3)
  - BLOOD ARSENIC INCREASED [None]
  - LYMPHADENOPATHY [None]
  - VISUAL IMPAIRMENT [None]
